FAERS Safety Report 9000593 (Version 2)
Quarter: 2013Q1

REPORT INFORMATION
  Report Type: Spontaneous
  Country: FR (occurrence: None)
  Receive Date: 20121221
  Receipt Date: 20130207
  Transmission Date: 20140127
  Serious: Yes (Hospitalization, Other)
  Sender: FDA-Public Use
  Company Number: AUR-APL-2012-05400

PATIENT
  Age: 84 Year
  Sex: Female

DRUGS (8)
  1. RAMIPRIL [Suspect]
     Indication: HYPERTENSION
     Route: 048
     Dates: end: 201210
  2. CORDARONE [Suspect]
     Indication: PRODUCT USED FOR UNKNOWN INDICATION
     Route: 048
     Dates: end: 201210
  3. SPIRONOLACTONE [Suspect]
     Indication: HYPERTENSION
     Route: 048
     Dates: end: 201210
  4. ZANIDIP [Suspect]
     Indication: HYPERTENSION
     Route: 048
     Dates: end: 201210
  5. ALLOPURINOL [Suspect]
     Indication: PRODUCT USED FOR UNKNOWN INDICATION
     Route: 048
     Dates: end: 201210
  6. PREVISCAN [Suspect]
     Indication: PRODUCT USED FOR UNKNOWN INDICATION
     Route: 048
     Dates: end: 201210
  7. PARACETAMOL (PARACETAMOL) [Concomitant]
  8. LEVOTHYROX (LEVOTHYROXINE SODIUM) INFUSION [Concomitant]

REACTIONS (9)
  - Renal failure acute [None]
  - Hyperkalaemia [None]
  - Hepatitis [None]
  - Electrocardiogram abnormal [None]
  - Platelet count decreased [None]
  - Renal tubular necrosis [None]
  - Continuous haemodiafiltration [None]
  - Escherichia test positive [None]
  - Hepatocellular injury [None]
